FAERS Safety Report 7934044-X (Version None)
Quarter: 2011Q4

REPORT INFORMATION
  Report Type: 
  Country: None (occurrence: None)
  Receive Date: 20111122
  Receipt Date: 20090903
  Transmission Date: 20120403
  Serious: Yes (Other)
  Sender: FDA-Public Use
  Company Number: PHHY2010TW74925

PATIENT
  Sex: Male

DRUGS (7)
  1. GLEEVEC [Suspect]
     Dosage: 400 MG, UNK
  2. GLEEVEC [Suspect]
     Dosage: 3 PILLS IN THE MORNING AND EVENING.
  3. GLEEVEC [Suspect]
     Dosage: 4 PILLS AFTER BREAKFAST
  4. STOOL SOFTENER [Concomitant]
  5. ANTIHYPERTENSIVES [Concomitant]
  6. GLEEVEC [Suspect]
     Indication: GASTROINTESTINAL STROMAL TUMOUR
     Dosage: 400 MG, UNK
     Route: 048
  7. GLEEVEC [Suspect]
     Dosage: 200 MG, UNK

REACTIONS (7)
  - OCULAR DISCOMFORT [None]
  - DIZZINESS [None]
  - NASOPHARYNGITIS [None]
  - EYE PAIN [None]
  - DYSPNOEA [None]
  - VOMITING [None]
  - OCULAR HYPERAEMIA [None]
